FAERS Safety Report 7305159-4 (Version None)
Quarter: 2011Q1

REPORT INFORMATION
  Report Type: 
  Country: None (occurrence: None)
  Receive Date: 20110222
  Receipt Date: 20110215
  Transmission Date: 20110831
  Serious: Yes (Other)
  Sender: FDA-Public Use
  Company Number: GB-PFIZER INC-GB-WYE-G06828210

PATIENT
  Age: 49 Year
  Sex: Female

DRUGS (1)
  1. PREMIQUE [Suspect]
     Indication: HORMONE REPLACEMENT THERAPY
     Dosage: 0.625 MG, UNK
     Route: 065
     Dates: start: 20090801

REACTIONS (10)
  - ARTHRALGIA [None]
  - HOT FLUSH [None]
  - DEPRESSION [None]
  - MOOD SWINGS [None]
  - MALAISE [None]
  - PAIN [None]
  - DRUG PRESCRIBING ERROR [None]
  - ACTIVITIES OF DAILY LIVING IMPAIRED [None]
  - VISUAL ACUITY REDUCED [None]
  - ALOPECIA [None]
